FAERS Safety Report 21596819 (Version 1)
Quarter: 2022Q4

REPORT INFORMATION
  Report Type: Spontaneous
  Country: US (occurrence: US)
  Receive Date: 20221115
  Receipt Date: 20221115
  Transmission Date: 20230112
  Serious: Yes (Other)
  Sender: FDA-Public Use
  Company Number: US-BECTON DICKINSON-US-BD-22-000303

PATIENT
  Age: 71 Year
  Sex: Male

DRUGS (1)
  1. CHLORAPREP WITH TINT [Suspect]
     Active Substance: CHLORHEXIDINE GLUCONATE\ISOPROPYL ALCOHOL
     Indication: Infection prophylaxis
     Dosage: 26 MILLILITER
     Route: 003
     Dates: start: 20220804, end: 20220806

REACTIONS (6)
  - Skin exfoliation [Unknown]
  - Drug hypersensitivity [Recovered/Resolved with Sequelae]
  - Pruritus [Recovered/Resolved with Sequelae]
  - Rash [Recovered/Resolved with Sequelae]
  - Infection [Unknown]
  - Product use complaint [Unknown]

NARRATIVE: CASE EVENT DATE: 20220806
